FAERS Safety Report 5729173-5 (Version None)
Quarter: 2008Q2

REPORT INFORMATION
  Report Type: 
  Country: None (occurrence: None)
  Receive Date: 20080506
  Receipt Date: 20080424
  Transmission Date: 20081010
  Serious: Yes (Hospitalization)
  Sender: FDA-Public Use
  Company Number: FR-PFIZER INC-2006053594

PATIENT
  Sex: Female

DRUGS (1)
  1. SU-011,248 [Suspect]
     Route: 048

REACTIONS (3)
  - HAEMORRHAGE [None]
  - JAUNDICE [None]
  - THROMBOCYTOPENIA [None]
